FAERS Safety Report 11460496 (Version 1)
Quarter: 2015Q3

REPORT INFORMATION
  Report Type: Report from Study
  Country: NL (occurrence: NL)
  Receive Date: 20150904
  Receipt Date: 20150904
  Transmission Date: 20151125
  Serious: Yes (Hospitalization)
  Sender: FDA-Public Use
  Company Number: NL-ABBVIE-15P-114-1428872-00

PATIENT
  Age: 92 Year
  Sex: Male
  Weight: 86 kg

DRUGS (1)
  1. LUCRIN DEPOT [Suspect]
     Active Substance: LEUPROLIDE ACETATE
     Indication: PROSTATE CANCER
     Route: 058
     Dates: start: 20130501

REACTIONS (2)
  - Hip fracture [Recovered/Resolved]
  - Skin hypertrophy [Unknown]

NARRATIVE: CASE EVENT DATE: 20150716
